FAERS Safety Report 7623804-0 (Version None)
Quarter: 2011Q3

REPORT INFORMATION
  Report Type: 
  Country: None (occurrence: None)
  Receive Date: 20110712
  Receipt Date: 20110701
  Transmission Date: 20111222
  Serious: Yes (Life-Threatening, Other)
  Sender: FDA-Public Use
  Company Number: GER/UKI/11/0018908

PATIENT
  Age: 85 Year
  Sex: Female
  Weight: 49 kg

DRUGS (5)
  1. SPIRIVIA (TIOTROPIUM BROMIDE) [Concomitant]
  2. OMEPRAZOLE [Concomitant]
  3. SYMBICORT (BUDNESONIDE W/FORMOTEROL FUMARATE) [Concomitant]
  4. ALENDRONATE SODIUM [Suspect]
     Indication: OSTEOPOROSIS
     Dosage: 70 MG,ORAL
     Route: 048
     Dates: start: 20080101, end: 20110606
  5. METOCLOPRAMIDE [Concomitant]

REACTIONS (1)
  - TRACHEO-OESOPHAGEAL FISTULA [None]
